FAERS Safety Report 24671229 (Version 1)
Quarter: 2024Q4

REPORT INFORMATION
  Report Type: Spontaneous
  Country: US (occurrence: US)
  Receive Date: 20241127
  Receipt Date: 20241127
  Transmission Date: 20250115
  Serious: No
  Sender: Harrow Health
  Company Number: US-IMP-2024001020

PATIENT
  Age: 54 Year
  Sex: Female

DRUGS (1)
  1. VEVYE [Suspect]
     Active Substance: CYCLOSPORINE
     Indication: Product used for unknown indication
     Route: 047
     Dates: start: 20241001, end: 202411

REACTIONS (3)
  - Instillation site pruritus [Unknown]
  - Instillation site irritation [Unknown]
  - Instillation site dryness [Not Recovered/Not Resolved]

NARRATIVE: CASE EVENT DATE: 20241030
